FAERS Safety Report 5520403-1 (Version None)
Quarter: 2007Q4

REPORT INFORMATION
  Report Type: 
  Country: None (occurrence: None)
  Receive Date: 20071119
  Receipt Date: 20071108
  Transmission Date: 20080405
  Serious: Yes (Hospitalization, Other)
  Sender: FDA-Public Use
  Company Number: GB-JNJFOC-20071102632

PATIENT
  Sex: Female
  Weight: 89 kg

DRUGS (6)
  1. REMICADE [Suspect]
     Indication: PSORIATIC ARTHROPATHY
     Route: 042
  2. CYCLOSPORINE [Concomitant]
  3. DIHYDROCODEINE [Concomitant]
  4. ETODOLAC [Concomitant]
  5. LANSOPRAZOLE [Concomitant]
  6. METFORMIN HCL [Concomitant]

REACTIONS (1)
  - NIPPLE EXUDATE BLOODY [None]
